FAERS Safety Report 14276663 (Version 1)
Quarter: 2017Q4

REPORT INFORMATION
  Report Type: Spontaneous
  Country: IN (occurrence: IN)
  Receive Date: 20171212
  Receipt Date: 20171212
  Transmission Date: 20180321
  Serious: Yes (Death, Hospitalization)
  Sender: FDA-Public Use
  Company Number: IN-GLENMARK PHARMACEUTICALS-2017GMK029968

PATIENT
  Age: 62 Year
  Sex: Male

DRUGS (8)
  1. TEICOPLANIN [Suspect]
     Active Substance: TEICOPLANIN
     Indication: EVIDENCE BASED TREATMENT
  2. COLISTIMETHATE SODIUM. [Suspect]
     Active Substance: COLISTIMETHATE SODIUM
     Indication: EVIDENCE BASED TREATMENT
  3. LEVOFLOXACIN. [Suspect]
     Active Substance: LEVOFLOXACIN
     Indication: BACTERIAL INFECTION
     Dosage: 750 MG, OD
     Route: 042
  4. IMIPENEM [Suspect]
     Active Substance: IMIPENEM
     Indication: BACTERIAL INFECTION
     Dosage: 500 MG, QID
     Route: 065
  5. IMIPENEM [Suspect]
     Active Substance: IMIPENEM
     Indication: EVIDENCE BASED TREATMENT
  6. ASPIRIN                            /00002701/ [Concomitant]
     Active Substance: ASPIRIN
     Indication: CORONARY ARTERY DISEASE
     Dosage: UNK
     Route: 065
  7. TEICOPLANIN [Suspect]
     Active Substance: TEICOPLANIN
     Indication: BACTERIAL INFECTION
     Dosage: 400 MG, OD
     Route: 065
  8. COLISTIMETHATE SODIUM. [Suspect]
     Active Substance: COLISTIMETHATE SODIUM
     Indication: BACTERIAL INFECTION
     Dosage: UNK
     Route: 065

REACTIONS (7)
  - Bacteraemia [Unknown]
  - Pneumonia [Unknown]
  - Drug resistance [Unknown]
  - Device related infection [Unknown]
  - Cardiac arrest [Fatal]
  - Condition aggravated [Unknown]
  - Therapy non-responder [Unknown]
